FAERS Safety Report 6577030-7 (Version None)
Quarter: 2010Q1

REPORT INFORMATION
  Report Type: 
  Country: None (occurrence: None)
  Receive Date: 20100210
  Receipt Date: 20100204
  Transmission Date: 20100710
  Serious: Yes (Hospitalization)
  Sender: FDA-Public Use
  Company Number: DE-ELI_LILLY_AND_COMPANY-DE200909000833

PATIENT
  Sex: Male
  Weight: 89 kg

DRUGS (7)
  1. PEMETREXED [Suspect]
     Indication: NON-SMALL CELL LUNG CANCER
     Dosage: 500 MG/M2, DAY 1 EVERY 21 DAYS
     Route: 042
     Dates: start: 20090819
  2. CISPLATIN [Suspect]
     Indication: NON-SMALL CELL LUNG CANCER
     Dosage: 75 MG/M2, DAY 1 EVERY 21 DAYS
     Route: 042
     Dates: start: 20090819
  3. DEXAMETHASONE [Concomitant]
     Indication: PROPHYLAXIS
     Dates: start: 20090818, end: 20090821
  4. FOLIC ACID [Concomitant]
     Indication: PROPHYLAXIS
     Dates: start: 20090814
  5. VITAMIN B-12 [Concomitant]
     Indication: PROPHYLAXIS
     Dates: start: 20090814, end: 20090816
  6. BELOC ZOK [Concomitant]
     Indication: ATRIAL FIBRILLATION
     Dates: start: 20040101
  7. AMLODIPIN                          /00972401/ [Concomitant]
     Indication: ATRIAL FIBRILLATION
     Dates: start: 20040101

REACTIONS (4)
  - DIZZINESS [None]
  - FATIGUE [None]
  - GASTRIC ULCER [None]
  - SPEECH DISORDER [None]
